FAERS Safety Report 21937044 (Version 2)
Quarter: 2023Q1

REPORT INFORMATION
  Report Type: Spontaneous
  Country: US (occurrence: None)
  Receive Date: 20230201
  Receipt Date: 20230327
  Transmission Date: 20230418
  Serious: No
  Sender: FDA-Public Use
  Company Number: 2023A015783

PATIENT
  Age: 616 Month
  Sex: Female
  Weight: 68 kg

DRUGS (1)
  1. SAPHNELO [Suspect]
     Active Substance: ANIFROLUMAB-FNIA
     Indication: Systemic lupus erythematosus
     Route: 041
     Dates: start: 20211015

REACTIONS (19)
  - COVID-19 [Unknown]
  - Systemic lupus erythematosus [Recovering/Resolving]
  - Pollakiuria [Unknown]
  - Fatigue [Unknown]
  - Insomnia [Unknown]
  - Joint swelling [Unknown]
  - Arthralgia [Unknown]
  - Contusion [Unknown]
  - Pain in jaw [Unknown]
  - Toothache [Unknown]
  - Gingival pain [Unknown]
  - Headache [Unknown]
  - Butterfly rash [Unknown]
  - Stomatitis [Unknown]
  - Urticaria [Unknown]
  - Pruritus [Unknown]
  - Constipation [Unknown]
  - Product dose omission issue [Unknown]
  - Inappropriate schedule of product administration [Unknown]

NARRATIVE: CASE EVENT DATE: 20211101
